FAERS Safety Report 17982294 (Version 2)
Quarter: 2020Q3

REPORT INFORMATION
  Report Type: Spontaneous
  Country: BE (occurrence: BE)
  Receive Date: 20200706
  Receipt Date: 20200730
  Transmission Date: 20201103
  Serious: No
  Sender: FDA-Public Use
  Company Number: BE-BAUSCH-BL-2018-014872

PATIENT
  Age: 30 Year
  Sex: Female

DRUGS (8)
  1. DIAZEPAM. [Suspect]
     Active Substance: DIAZEPAM
     Indication: OCCUPATIONAL EXPOSURE TO PRODUCT
     Route: 065
  2. ZOLPIDEM [Suspect]
     Active Substance: ZOLPIDEM TARTRATE
     Indication: OCCUPATIONAL EXPOSURE TO PRODUCT
     Route: 065
  3. CAPTOPRIL. [Suspect]
     Active Substance: CAPTOPRIL
     Indication: OCCUPATIONAL EXPOSURE TO PRODUCT
     Route: 065
  4. LORAZEPAM. [Suspect]
     Active Substance: LORAZEPAM
     Indication: OCCUPATIONAL EXPOSURE TO PRODUCT
     Route: 065
  5. TRAZODONE HYDROCHLORIDE. [Suspect]
     Active Substance: TRAZODONE HYDROCHLORIDE
     Indication: OCCUPATIONAL EXPOSURE TO PRODUCT
     Route: 065
  6. ALPRAZOLAM. [Suspect]
     Active Substance: ALPRAZOLAM
     Indication: OCCUPATIONAL EXPOSURE TO PRODUCT
     Route: 065
  7. BROMAZEPAM [Suspect]
     Active Substance: BROMAZEPAM
     Indication: OCCUPATIONAL EXPOSURE TO PRODUCT
     Route: 065
  8. TETRAZEPAM [Suspect]
     Active Substance: TETRAZEPAM
     Indication: OCCUPATIONAL EXPOSURE TO PRODUCT
     Route: 065

REACTIONS (2)
  - Dermatitis contact [Unknown]
  - Occupational exposure to product [Unknown]
